FAERS Safety Report 5201497-X (Version None)
Quarter: 2007Q1

REPORT INFORMATION
  Report Type: 
  Country: None (occurrence: None)
  Receive Date: 20070104
  Receipt Date: 20061220
  Transmission Date: 20070707
  Serious: Yes (Hospitalization)
  Sender: FDA-Public Use
  Company Number: 2006S1009972

PATIENT
  Age: 37 Year
  Sex: Male
  Weight: 77 kg

DRUGS (9)
  1. CLOZAPINE [Suspect]
     Indication: SCHIZOPHRENIA, PARANOID TYPE
     Dosage: 25 MG HS PO
     Route: 048
     Dates: end: 20061019
  2. CLOZAPINE [Suspect]
     Indication: SCHIZOPHRENIA, PARANOID TYPE
     Dosage: 100 MG QAM PO ; 200 MG HS PO
     Route: 048
     Dates: end: 20061019
  3. CLOZAPINE [Suspect]
     Indication: SCHIZOPHRENIA, PARANOID TYPE
     Dosage: 100 MG QAM PO ; 200 MG HS PO
     Route: 048
     Dates: end: 20061019
  4. SERTRALINE [Concomitant]
  5. LOVASTATIN [Concomitant]
  6. FERROUS SULFATE TAB [Concomitant]
  7. DEXAMETHASONE [Concomitant]
  8. THALIDOMIDE [Concomitant]
  9. WARFARIN SODIUM [Concomitant]

REACTIONS (8)
  - BONE MARROW TRANSPLANT [None]
  - CHILLS [None]
  - COUGH [None]
  - LABORATORY TEST ABNORMAL [None]
  - MULTIPLE MYELOMA [None]
  - PYREXIA [None]
  - SPINAL COMPRESSION FRACTURE [None]
  - WHITE BLOOD CELL COUNT DECREASED [None]
